FAERS Safety Report 10453479 (Version 1)
Quarter: 2014Q3

REPORT INFORMATION
  Report Type: Report from Study
  Country: DE (occurrence: DE)
  Receive Date: 20140915
  Receipt Date: 20140915
  Transmission Date: 20150326
  Serious: Yes (Other)
  Sender: FDA-Public Use
  Company Number: PHHY2014DE115678

PATIENT
  Sex: Female
  Weight: 49 kg

DRUGS (2)
  1. NO TREATMENT RECEIVED [Suspect]
     Active Substance: UNSPECIFIED INGREDIENT
  2. GLIVEC [Suspect]
     Active Substance: IMATINIB MESYLATE
     Indication: CHRONIC MYELOID LEUKAEMIA
     Dosage: 400 MG, QD
     Dates: start: 20090330, end: 20101130

REACTIONS (10)
  - Pancytopenia [Recovered/Resolved]
  - Oedema [Recovered/Resolved]
  - Pain in jaw [Recovered/Resolved]
  - Haematoma [Recovered/Resolved]
  - Cough [Recovered/Resolved]
  - Stress cardiomyopathy [Recovered/Resolved]
  - Arthralgia [Recovered/Resolved]
  - Skin toxicity [Recovered/Resolved]
  - Dysphonia [Recovered/Resolved]
  - Drug intolerance [Recovered/Resolved]

NARRATIVE: CASE EVENT DATE: 20090401
